FAERS Safety Report 7505134-0 (Version None)
Quarter: 2011Q2

REPORT INFORMATION
  Report Type: 
  Country: None (occurrence: None)
  Receive Date: 20110526
  Receipt Date: 20110519
  Transmission Date: 20111010
  Serious: Yes (Hospitalization)
  Sender: FDA-Public Use
  Company Number: IT-BRISTOL-MYERS SQUIBB COMPANY-15764194

PATIENT
  Age: 52 Year
  Sex: Male

DRUGS (9)
  1. RIFADIN [Suspect]
     Indication: ENDOCARDITIS BACTERIAL
     Dosage: 1 DF : 2UNITS,600MG COATED TABS
     Route: 048
     Dates: start: 20110227, end: 20110310
  2. GENTALYN [Concomitant]
     Dosage: 40MG/ML, SOLUTION FOR INJECTION
     Route: 042
     Dates: start: 20110301, end: 20110304
  3. EUTIROX [Concomitant]
     Dosage: 100MICRO G TABS
     Route: 048
     Dates: start: 20070221, end: 20110310
  4. CEFOTAXIME [Concomitant]
     Dosage: 1000MG/4ML POWDER FOR SOLUTION FOR INJECTION
     Route: 042
     Dates: start: 20110302, end: 20110308
  5. COUMADIN [Suspect]
     Indication: HEART VALVE REPLACEMENT
     Route: 048
     Dates: start: 20070226, end: 20110310
  6. CANDESARTAN CILEXETIL [Concomitant]
     Route: 048
     Dates: start: 20090301, end: 20110310
  7. VANCOMYCIN [Concomitant]
     Route: 042
     Dates: start: 20110223, end: 20110228
  8. LEVOFLOXACIN [Suspect]
     Indication: ENDOCARDITIS BACTERIAL
     Dosage: 5MG/ML SOLUTION FOR INFUSION
     Dates: start: 20110227, end: 20110308
  9. CONGESCOR [Concomitant]
     Route: 048
     Dates: start: 20070221, end: 20110310

REACTIONS (2)
  - INTERNATIONAL NORMALISED RATIO DECREASED [None]
  - ENDOCARDITIS BACTERIAL [None]
